FAERS Safety Report 9518501 (Version 1)
Quarter: 2013Q3

REPORT INFORMATION
  Report Type: Spontaneous
  Country: US (occurrence: US)
  Receive Date: 20130912
  Receipt Date: 20130912
  Transmission Date: 20140515
  Serious: Yes (Other)
  Sender: FDA-Public Use
  Company Number: US-BAYER-2013-109969

PATIENT
  Age: 39 Year
  Sex: Female

DRUGS (4)
  1. YASMIN [Suspect]
  2. DICLOXACILLIN [Concomitant]
     Dosage: 250 MG, UNK
     Dates: start: 20060527
  3. AUGMENTIN [Concomitant]
  4. VOLTAREN XR [Concomitant]

REACTIONS (1)
  - Thrombophlebitis [None]
